FAERS Safety Report 19309964 (Version 1)
Quarter: 2021Q2

REPORT INFORMATION
  Report Type: Spontaneous
  Country: US (occurrence: US)
  Receive Date: 20210526
  Receipt Date: 20210526
  Transmission Date: 20210717
  Serious: Yes (Other)
  Sender: FDA-Public Use
  Company Number: US-SA-2021SA170479

PATIENT
  Age: 38 Year
  Sex: Female

DRUGS (2)
  1. ZANTAC [Suspect]
     Active Substance: RANITIDINE HYDROCHLORIDE
     Indication: GASTROOESOPHAGEAL REFLUX DISEASE
     Dosage: 25 MG, QD
     Dates: start: 201501, end: 201707
  2. ZANTAC [Suspect]
     Active Substance: RANITIDINE HYDROCHLORIDE
     Indication: DYSPEPSIA

REACTIONS (4)
  - Ovarian cancer [Unknown]
  - Gastrointestinal carcinoma [Unknown]
  - Ovarian cancer stage IV [Unknown]
  - Retroperitoneal cancer [Unknown]

NARRATIVE: CASE EVENT DATE: 20170201
